FAERS Safety Report 25995618 (Version 1)
Quarter: 2025Q4

REPORT INFORMATION
  Report Type: Spontaneous
  Country: GB (occurrence: GB)
  Receive Date: 20251104
  Receipt Date: 20251104
  Transmission Date: 20260118
  Serious: Yes (Disabling, Other)
  Sender: AUROBINDO
  Company Number: GB-MHRA-MED-202510221403056130-QFGWH

PATIENT
  Age: 45 Year
  Sex: Male

DRUGS (1)
  1. FLUOXETINE [Suspect]
     Active Substance: FLUOXETINE HYDROCHLORIDE
     Indication: Adverse drug reaction
     Dosage: UNK
     Route: 065
     Dates: start: 20150110

REACTIONS (2)
  - Medication error [Unknown]
  - Acute stress disorder [Recovered/Resolved]

NARRATIVE: CASE EVENT DATE: 20160220
